FAERS Safety Report 9720510 (Version 4)
Quarter: 2013Q4

REPORT INFORMATION
  Report Type: Spontaneous
  Country: GB (occurrence: GB)
  Receive Date: 20131129
  Receipt Date: 20131226
  Transmission Date: 20140711
  Serious: Yes (Other)
  Sender: FDA-Public Use
  Company Number: GB-JNJFOC-20121103082

PATIENT
  Sex: Female

DRUGS (10)
  1. RISPERDAL [Suspect]
     Indication: SCHIZOPHRENIA, PARANOID TYPE
     Route: 048
     Dates: start: 20120308, end: 20120609
  2. RISPERDAL [Suspect]
     Indication: SCHIZOPHRENIA, PARANOID TYPE
     Dosage: 3 MG MORNING AND 4 MG (AT NIGHT)
     Route: 048
     Dates: start: 20120221, end: 20120307
  3. RISPERDAL [Suspect]
     Indication: SCHIZOPHRENIA, PARANOID TYPE
     Dosage: 6 MG IN THE MORNING
     Route: 048
     Dates: start: 20120609, end: 20120821
  4. HALOPERIDOL [Suspect]
     Indication: SCHIZOPHRENIA, PARANOID TYPE
     Route: 048
     Dates: start: 20111229, end: 20120104
  5. HALOPERIDOL [Suspect]
     Indication: SCHIZOPHRENIA, PARANOID TYPE
     Route: 048
     Dates: start: 20120105, end: 20120109
  6. CHLORPROMAZINE [Suspect]
     Indication: SCHIZOPHRENIA, PARANOID TYPE
     Route: 065
     Dates: start: 20120109, end: 20120114
  7. CHLORPROMAZINE [Suspect]
     Indication: SCHIZOPHRENIA, PARANOID TYPE
     Route: 065
     Dates: start: 20111215, end: 20111219
  8. ZOPICLONE [Suspect]
     Indication: INSOMNIA
     Route: 065
     Dates: start: 20120210, end: 20120718
  9. PROMETHAZINE [Concomitant]
     Dosage: PRN
     Route: 065
     Dates: start: 20111216
  10. SENNA [Concomitant]
     Route: 065
     Dates: start: 20120116

REACTIONS (3)
  - Schizoaffective disorder [Unknown]
  - Exposure during pregnancy [Recovered/Resolved]
  - Blood iron decreased [Unknown]
